FAERS Safety Report 8228995-9 (Version None)
Quarter: 2012Q1

REPORT INFORMATION
  Report Type: 
  Country: None (occurrence: None)
  Receive Date: 20120322
  Receipt Date: 20120309
  Transmission Date: 20120608
  Serious: Yes (Other)
  Sender: FDA-Public Use
  Company Number: CA-ROCHE-1046861

PATIENT
  Sex: Female
  Weight: 75 kg

DRUGS (11)
  1. DIPHENHYDRAMINE HCL [Concomitant]
     Route: 048
     Dates: start: 20110621, end: 20110621
  2. MABTHERA [Suspect]
     Indication: WEGENER'S GRANULOMATOSIS
     Route: 042
     Dates: start: 20101007, end: 20111201
  3. VITAMIN D [Concomitant]
     Indication: OSTEOPOROSIS
     Route: 048
  4. METHYLPREDNISOLONE [Concomitant]
     Route: 042
     Dates: start: 20110621, end: 20110621
  5. CALCIUM CARBONATE [Concomitant]
     Indication: OSTEOPOROSIS
     Route: 048
  6. ACETAMINOPHEN [Concomitant]
     Route: 048
     Dates: start: 20110621, end: 20110621
  7. LORAZEPAM [Concomitant]
     Indication: ANXIETY
  8. HYDROMORPHONE HCL [Concomitant]
     Indication: PAIN
  9. MABTHERA [Suspect]
     Dates: start: 20110607, end: 20110621
  10. DESMOPRESSIN ACETATE [Concomitant]
     Indication: DIABETES INSIPIDUS
  11. PREDNISONE TAB [Concomitant]
     Indication: WEGENER'S GRANULOMATOSIS
     Route: 048

REACTIONS (3)
  - BILIARY DILATATION [None]
  - HEPATIC ENZYME INCREASED [None]
  - CHOLELITHIASIS [None]
